FAERS Safety Report 8235788-5 (Version None)
Quarter: 2012Q1

REPORT INFORMATION
  Report Type: 
  Country: None (occurrence: None)
  Receive Date: 20120326
  Receipt Date: 20120320
  Transmission Date: 20120608
  Serious: Yes (Hospitalization, Other)
  Sender: FDA-Public Use
  Company Number: FR-PFIZER INC-2012071701

PATIENT
  Age: 34 Year
  Sex: Female

DRUGS (13)
  1. EFFEXOR [Concomitant]
     Dosage: UNK
  2. XANAX [Suspect]
     Dosage: 45 DF, SINGLE (22.5 MG)
     Route: 048
     Dates: start: 20111214, end: 20111214
  3. VALPROIC ACID [Concomitant]
     Dosage: 300 UNK, UNK
  4. ATENOLOL [Concomitant]
     Dosage: UNK
  5. XANAX [Suspect]
     Dosage: UNK
  6. MEPRONIZINE [Concomitant]
  7. ESCITALOPRAM [Concomitant]
     Dosage: UNK
  8. TERCIAN [Suspect]
     Dosage: UNK
  9. RISPERDAL [Concomitant]
     Dosage: UNK
  10. LEPTICUR [Concomitant]
     Dosage: UNK
  11. CODEINE PHOSPHATE AND ACETAMINOPHEN [Suspect]
     Dosage: 15 DF, SINGLE
     Route: 048
     Dates: start: 20111214, end: 20111214
  12. TERCIAN [Suspect]
     Dosage: 15 DF, SINGLE
     Route: 048
     Dates: start: 20111214, end: 20111214
  13. PRAVASTATIN [Concomitant]
     Dosage: UNK

REACTIONS (5)
  - INTENTIONAL OVERDOSE [None]
  - COMA [None]
  - PSYCHOMOTOR RETARDATION [None]
  - LOSS OF CONSCIOUSNESS [None]
  - FALL [None]
